FAERS Safety Report 10542145 (Version 1)
Quarter: 2014Q4

REPORT INFORMATION
  Report Type: Spontaneous
  Country: JP (occurrence: JP)
  Receive Date: 20141024
  Receipt Date: 20141024
  Transmission Date: 20150529
  Serious: Yes (Life-Threatening, Other)
  Sender: FDA-Public Use
  Company Number: JP-ASTRAZENECA-2014SE80440

PATIENT
  Age: 47 Year
  Sex: Female
  Weight: 55 kg

DRUGS (15)
  1. ENEMA (SODIUM PHOSPHATE, DIBASIC\SODIUM PHOSPHATE, MONOBASIC) [Concomitant]
     Active Substance: SODIUM PHOSPHATE, DIBASIC\SODIUM PHOSPHATE, MONOBASIC
     Indication: SUICIDE ATTEMPT
     Dosage: 36
  2. ANTIEPILEPTIC DRUG [Concomitant]
     Indication: SUICIDE ATTEMPT
     Dosage: 200 MG X 60
  3. ANTIDEPRESSANT DRUG [Concomitant]
     Indication: SUICIDE ATTEMPT
     Dosage: 25 MGX 52 CAPSULES
  4. ANTIEPILEPTIC DRUG [Concomitant]
     Indication: SUICIDE ATTEMPT
     Dosage: 200 MG X 50
  5. ANTIPARKINSONIAN DRUG [Concomitant]
     Indication: SUICIDE ATTEMPT
     Dosage: 30 TABLETS
  6. CATHARTIC [Concomitant]
     Indication: SUICIDE ATTEMPT
  7. SEROQUEL [Suspect]
     Active Substance: QUETIAPINE FUMARATE
     Indication: SUICIDE ATTEMPT
     Route: 048
     Dates: start: 20141016
  8. ANTIEPILEPTIC DRUG [Concomitant]
     Indication: SUICIDE ATTEMPT
     Dosage: 100 MG X 18
  9. NEUROPSYCHIATRIC DRUG [Concomitant]
     Indication: SUICIDE ATTEMPT
     Dosage: 5 MG X 52
  10. NEUROPSYCHIATRIC DRUG [Concomitant]
     Indication: SUICIDE ATTEMPT
     Dosage: 25 MG X 18
  11. NEUROPSYCHIATRIC DRUG [Concomitant]
     Indication: SUICIDE ATTEMPT
     Dosage: 12.5 MG X 9
  12. MULTI-INGREDIENT COLD MEDICATION [Concomitant]
     Indication: SUICIDE ATTEMPT
     Dosage: 19 PACKS
  13. ANTIANXIETY DRUG [Concomitant]
     Indication: SUICIDE ATTEMPT
     Dosage: 5 MG X 18
  14. HYPNOTIC SEDATIVE [Concomitant]
     Indication: SUICIDE ATTEMPT
  15. ANTIANXIETY DRUG [Concomitant]
     Indication: SUICIDE ATTEMPT
     Dosage: 0.5 MG X 30

REACTIONS (3)
  - Intentional overdose [Unknown]
  - Suicide attempt [Unknown]
  - Coma [Unknown]

NARRATIVE: CASE EVENT DATE: 20141016
